FAERS Safety Report 26054816 (Version 1)
Quarter: 2025Q4

REPORT INFORMATION
  Report Type: Spontaneous
  Country: CA (occurrence: CA)
  Receive Date: 20251117
  Receipt Date: 20251117
  Transmission Date: 20260118
  Serious: Yes (Other)
  Sender: Harrow Health
  Company Number: CA-Novartis Pharma AG-NVSC2025CA171598

PATIENT
  Age: 71 Year
  Sex: Female
  Weight: 88.0 kg

DRUGS (1)
  1. VIGAMOX [Suspect]
     Active Substance: MOXIFLOXACIN HYDROCHLORIDE
     Indication: Prophylaxis

REACTIONS (6)
  - Eye discharge [Recovered/Resolved]
  - Eye infection bacterial [Recovered/Resolved]
  - Lacrimation increased [Recovered/Resolved]
  - Ocular hyperaemia [Recovered/Resolved]
  - Off label use [Recovered/Resolved]
  - Drug ineffective for unapproved indication [Recovered/Resolved]
